FAERS Safety Report 9018554 (Version 3)
Quarter: 2013Q3

REPORT INFORMATION
  Report Type: Spontaneous
  Country: US (occurrence: US)
  Receive Date: 20130118
  Receipt Date: 20130724
  Transmission Date: 20140515
  Serious: No
  Sender: FDA-Public Use
  Company Number: US-PFIZER INC-2013020152

PATIENT
  Sex: Female

DRUGS (1)
  1. CHANTIX [Suspect]
     Dosage: UNK
     Dates: end: 20130114

REACTIONS (3)
  - Phantom pain [Not Recovered/Not Resolved]
  - Neuralgia [Unknown]
  - Feeling abnormal [Unknown]
